FAERS Safety Report 4369384-7 (Version None)
Quarter: 2004Q2

REPORT INFORMATION
  Report Type: 
  Country: None (occurrence: None)
  Receive Date: 20040528
  Receipt Date: 20040519
  Transmission Date: 20050107
  Serious: Yes (Death)
  Sender: FDA-Public Use
  Company Number: US-JNJFOC-20040504606

PATIENT
  Age: 34 Year
  Sex: Female

DRUGS (1)
  1. DURAGESIC [Suspect]
     Indication: DRUG ABUSER
     Dosage: TRANSDERMAL
     Route: 062

REACTIONS (1)
  - MEDICATION ERROR [None]
